FAERS Safety Report 18483837 (Version 1)
Quarter: 2020Q4

REPORT INFORMATION
  Report Type: Spontaneous
  Country: DE (occurrence: DE)
  Receive Date: 20201110
  Receipt Date: 20201110
  Transmission Date: 20210114
  Serious: Yes (Death, Other)
  Sender: FDA-Public Use
  Company Number: DE-MICRO LABS LIMITED-ML2020-03316

PATIENT
  Age: 21 Year
  Sex: Male

DRUGS (10)
  1. NAPROXEN. [Suspect]
     Active Substance: NAPROXEN
  2. NORTILIDINE [Suspect]
     Active Substance: NORTILIDINE
  3. TILIDINE [Suspect]
     Active Substance: TILIDINE
  4. MORPHINE [Suspect]
     Active Substance: MORPHINE
  5. BISNORTILIDINE [Suspect]
     Active Substance: BISNORTILIDINE
  6. ALPRAZOLAM. [Suspect]
     Active Substance: ALPRAZOLAM
  7. MDPBP (3^,4^-METHYLENEDIOXY-ALPHA-PYRROLIDINOBUTYROPHENONE) [Suspect]
     Active Substance: MDPBP
  8. CODEINE [Suspect]
     Active Substance: CODEINE
  9. CAFFEINE CITRATE. [Suspect]
     Active Substance: CAFFEINE CITRATE
  10. CITALOPRAM [Suspect]
     Active Substance: CITALOPRAM HYDROBROMIDE

REACTIONS (2)
  - Toxicity to various agents [Fatal]
  - Drug abuse [Unknown]
